FAERS Safety Report 9844464 (Version 1)
Quarter: 2014Q1

REPORT INFORMATION
  Report Type: Spontaneous
  Country: US (occurrence: None)
  Receive Date: 20140123
  Receipt Date: 20140123
  Transmission Date: 20141002
  Serious: No
  Sender: FDA-Public Use
  Company Number: None

PATIENT
  Age: 30 Year
  Sex: Male
  Weight: 86.18 kg

DRUGS (1)
  1. ZOLOFT [Suspect]
     Indication: AFFECTIVE DISORDER
     Route: 048
     Dates: start: 20100110, end: 20100130

REACTIONS (2)
  - Chest discomfort [None]
  - Feeling abnormal [None]
